FAERS Safety Report 6248021-0 (Version None)
Quarter: 2009Q2

REPORT INFORMATION
  Report Type: 
  Country: None (occurrence: None)
  Receive Date: 20090626
  Receipt Date: 20090617
  Transmission Date: 20091009
  Serious: Yes (Life-Threatening, Hospitalization, Disabling)
  Sender: FDA-Public Use
  Company Number: FR-ABBOTT-09P-056-0578088-00

PATIENT
  Age: 72 Year
  Sex: Female
  Weight: 60 kg

DRUGS (1)
  1. HUMIRA [Suspect]
     Indication: PSORIASIS
     Route: 058
     Dates: start: 20090503, end: 20090503

REACTIONS (7)
  - COUGH [None]
  - DYSPNOEA [None]
  - HYPOXIA [None]
  - LUNG DISORDER [None]
  - OXYGEN SATURATION DECREASED [None]
  - PYREXIA [None]
  - RASH [None]
